FAERS Safety Report 5407502-X (Version None)
Quarter: 2007Q3

REPORT INFORMATION
  Report Type: 
  Country: None (occurrence: None)
  Receive Date: 20070713
  Receipt Date: 20061227
  Transmission Date: 20080115
  Serious: No
  Sender: FDA-Public Use
  Company Number: US-JNJFOC-20060105353

PATIENT
  Age: 25 Year
  Sex: Female
  Weight: 58.2872 kg

DRUGS (1)
  1. ORTHO EVRA [Suspect]
     Dosage: 1 DOSE (S), 3 IN 4 WEEK, TRANSDERMAL
     Route: 062
     Dates: start: 20050101, end: 20051001

REACTIONS (5)
  - ABDOMINAL PAIN LOWER [None]
  - DYSPNOEA [None]
  - FATIGUE [None]
  - HAEMORRHAGE [None]
  - VOMITING [None]
